FAERS Safety Report 4341783-9 (Version None)
Quarter: 2004Q2

REPORT INFORMATION
  Report Type: 
  Country: None (occurrence: None)
  Receive Date: 20040420
  Receipt Date: 20040408
  Transmission Date: 20050107
  Serious: Yes (Hospitalization)
  Sender: FDA-Public Use
  Company Number: FR-BRISTOL-MYERS SQUIBB COMPANY-12556189

PATIENT
  Age: 42 Year
  Sex: Male

DRUGS (1)
  1. BRISTOPEN CAPS 500 MG [Suspect]
     Indication: OSTEOMYELITIS
     Dosage: THERAPY DISCONTINUED 26-JAN-2004 AND RE-STARTED ON 30-JAN-2004.
     Route: 048
     Dates: start: 20040111, end: 20040204

REACTIONS (6)
  - DRUG INEFFECTIVE [None]
  - ERYSIPELAS [None]
  - ESCHERICHIA INFECTION [None]
  - GLOMERULONEPHROPATHY [None]
  - RENAL FAILURE ACUTE [None]
  - STAPHYLOCOCCAL INFECTION [None]
